FAERS Safety Report 5030511-X (Version None)
Quarter: 2006Q2

REPORT INFORMATION
  Report Type: 
  Country: None (occurrence: None)
  Receive Date: 20060615
  Receipt Date: 20060607
  Transmission Date: 20061013
  Serious: Yes (Hospitalization)
  Sender: FDA-Public Use
  Company Number: 2006-06-0385

PATIENT
  Sex: Male

DRUGS (1)
  1. INTRON A [Suspect]
     Dosage: 9 MIU TIW

REACTIONS (3)
  - ABASIA [None]
  - BALANCE DISORDER [None]
  - PROTEIN TOTAL INCREASED [None]
